FAERS Safety Report 4476062-2 (Version None)
Quarter: 2004Q4

REPORT INFORMATION
  Report Type: 
  Country: None (occurrence: None)
  Receive Date: 20041012
  Receipt Date: 20040929
  Transmission Date: 20050328
  Serious: Yes (Life-Threatening, Hospitalization, Other)
  Sender: FDA-Public Use
  Company Number: 2004055660

PATIENT
  Age: 55 Year
  Sex: Female

DRUGS (9)
  1. GEODON [Suspect]
     Indication: MENTAL DISORDER
     Dosage: 120 MG (60 MG, 2 IN 1 D)
     Dates: start: 20040505, end: 20040730
  2. LOVASTATIN [Concomitant]
  3. METFORMIN HCL [Concomitant]
  4. GLIPIZIDE [Concomitant]
  5. METOPROLOL SUCCINATE [Concomitant]
  6. CAPTOPRIL [Concomitant]
  7. BUPROPION HYDROCHLORIDE [Concomitant]
  8. IPRATROPIUM BROMIDE [Concomitant]
  9. SALBUTAMOL (SALBUTAMOL) [Concomitant]

REACTIONS (10)
  - BRADYCARDIA [None]
  - CARDIAC FAILURE CONGESTIVE [None]
  - CARDITIS [None]
  - CEREBROVASCULAR ACCIDENT [None]
  - CHRONIC OBSTRUCTIVE AIRWAYS DISEASE [None]
  - CORONARY ARTERY DISEASE [None]
  - DIABETES MELLITUS NON-INSULIN-DEPENDENT [None]
  - ELECTROCARDIOGRAM QT SHORTENED [None]
  - IMPLANT SITE INFECTION [None]
  - STAPHYLOCOCCAL INFECTION [None]
